FAERS Safety Report 15704073 (Version 2)
Quarter: 2019Q1

REPORT INFORMATION
  Report Type: Spontaneous
  Country: US (occurrence: US)
  Receive Date: 20181210
  Receipt Date: 20190320
  Transmission Date: 20190417
  Serious: Yes (Other)
  Sender: FDA-Public Use
  Company Number: US-PFIZER INC-2018501580

PATIENT
  Age: 64 Year
  Sex: Male

DRUGS (9)
  1. FLECAINIDE ACETATE. [Concomitant]
     Active Substance: FLECAINIDE ACETATE
     Dosage: 300 MG, DAILY
  2. WARFARIN [Concomitant]
     Active Substance: WARFARIN
     Dosage: 12.5 MG, UNK [12.5 MG/ NIE.]
  3. GABAPENTIN. [Suspect]
     Active Substance: GABAPENTIN
     Dosage: 300 MG, 1X/DAY
     Dates: start: 201809, end: 2018
  4. DIGOXIN. [Concomitant]
     Active Substance: DIGOXIN
     Dosage: 0.125 UG, UNK
  5. WARFARIN [Concomitant]
     Active Substance: WARFARIN
     Dosage: 8 MG, UNK (ONE DAY)
  6. METOPROLOL SUCCINATE. [Concomitant]
     Active Substance: METOPROLOL SUCCINATE
     Dosage: 25 MG, DAILY
  7. GABAPENTIN. [Suspect]
     Active Substance: GABAPENTIN
     Dosage: 300 MG, 1X/DAY
     Dates: start: 201810, end: 201811
  8. WARFARIN [Concomitant]
     Active Substance: WARFARIN
     Dosage: 9 MG, UNK (THE NEXT)
  9. GABAPENTIN. [Suspect]
     Active Substance: GABAPENTIN
     Indication: NEUROPATHY PERIPHERAL
     Dosage: 300 MG, 1X/DAY
     Dates: start: 20180828, end: 2018

REACTIONS (9)
  - Atrial flutter [Recovering/Resolving]
  - Cardiac disorder [Recovered/Resolved]
  - Atrial fibrillation [Recovering/Resolving]
  - Arrhythmia [Recovered/Resolved]
  - Pulmonary embolism [Unknown]
  - Varicose vein [Unknown]
  - Heart rate irregular [Recovered/Resolved]
  - Intentional product misuse [Unknown]
  - Embolism [Recovered/Resolved]

NARRATIVE: CASE EVENT DATE: 2018
